FAERS Safety Report 6923826-9 (Version None)
Quarter: 2010Q3

REPORT INFORMATION
  Report Type: 
  Country: None (occurrence: None)
  Receive Date: 20100813
  Receipt Date: 20090730
  Transmission Date: 20110219
  Serious: Yes (Other)
  Sender: FDA-Public Use
  Company Number: US-BRISTOL-MYERS SQUIBB COMPANY-14722318

PATIENT
  Age: 36 Year
  Sex: Male
  Weight: 69 kg

DRUGS (8)
  1. REYATAZ [Suspect]
     Indication: HIV INFECTION
  2. RITONAVIR [Suspect]
  3. TENOFOVIR DISOPROXIL FUMARATE [Suspect]
  4. ABACAVIR [Suspect]
  5. PREDNISONE [Concomitant]
     Dosage: 1DF-20-30MG ALTERNATING DAILY
  6. DESIPRAMINE HCL [Concomitant]
  7. OXYCODONE [Concomitant]
  8. OXYCONTIN [Concomitant]

REACTIONS (1)
  - THROMBOCYTOPENIA [None]
